FAERS Safety Report 15033061 (Version 2)
Quarter: 2018Q3

REPORT INFORMATION
  Report Type: Spontaneous
  Country: US (occurrence: US)
  Receive Date: 20180619
  Receipt Date: 20180919
  Transmission Date: 20181010
  Serious: Yes (Hospitalization, Other)
  Sender: FDA-Public Use
  Company Number: US-AVADEL SPECIALTY PHARMACEUTICALS, LLC-2018AVA00073

PATIENT
  Age: 85 Year
  Sex: Male
  Weight: 72.56 kg

DRUGS (4)
  1. NOCTIVA [Suspect]
     Active Substance: DESMOPRESSIN ACETATE
     Indication: URINARY INCONTINENCE
     Dosage: UNK, 1X/DAY AT NIGHT
     Route: 045
     Dates: start: 20180523, end: 20180525
  2. METOPROLOL SUCCINATE. [Suspect]
     Active Substance: METOPROLOL SUCCINATE
     Indication: HYPERTENSION
     Dosage: 25 MG, 1X/DAY
     Route: 048
  3. UNSPECIFIED VITAMINS [Concomitant]
     Active Substance: VITAMINS
  4. UNSPECIFIED SUPPLEMENTS [Concomitant]

REACTIONS (4)
  - Eye pain [Recovered/Resolved]
  - Blood sodium decreased [Recovered/Resolved]
  - Blood pressure increased [Unknown]
  - Eye irritation [Recovered/Resolved]

NARRATIVE: CASE EVENT DATE: 20180523
